FAERS Safety Report 8250356-7 (Version None)
Quarter: 2012Q1

REPORT INFORMATION
  Report Type: 
  Country: None (occurrence: None)
  Receive Date: 20120328
  Receipt Date: 20120322
  Transmission Date: 20120608
  Serious: Yes (Hospitalization, Other)
  Sender: FDA-Public Use
  Company Number: ACO_26913_2011

PATIENT
  Age: 44 Year
  Sex: Male
  Weight: 95.2 kg

DRUGS (9)
  1. AMPYRA [Suspect]
     Indication: GAIT DISTURBANCE
     Dosage: 10 MG, BID, ORAL
     Route: 048
     Dates: start: 20100801, end: 20110730
  2. KEPRA (LEVETIRACETAM) 12/23/2008 TO 07/28/2011 [Concomitant]
  3. ACTONEL [Concomitant]
  4. ECOTRIN (ACETYLSALICYLIC ACID) ONGOING [Concomitant]
  5. KEPRA (LEVETIRACETAM) 07/29/2011 TO 07/29/2011 [Concomitant]
  6. FLOMAX /00889901/(MORNIFLUMATE) ONGOING [Concomitant]
  7. PRAVASTATIN (PRAVASTATIN) ONGOING [Concomitant]
  8. TYSABRI [Concomitant]
  9. KEPRA (LEVETIRACETAM) --/--/2011 TO ONGOING [Concomitant]

REACTIONS (6)
  - NUCLEAR MAGNETIC RESONANCE IMAGING BRAIN ABNORMAL [None]
  - LIFE SUPPORT [None]
  - PYREXIA [None]
  - HIP FRACTURE [None]
  - CONVULSION [None]
  - WHITE BLOOD CELL COUNT INCREASED [None]
